FAERS Safety Report 8414995-2 (Version None)
Quarter: 2012Q2

REPORT INFORMATION
  Report Type: 
  Country: None (occurrence: None)
  Receive Date: 20120606
  Receipt Date: 20120316
  Transmission Date: 20120825
  Serious: No
  Sender: FDA-Public Use
  Company Number: US-GLAXOSMITHKLINE-A0970196A

PATIENT
  Age: 54 Year
  Sex: Female

DRUGS (5)
  1. CARBAMAZEPINE [Concomitant]
  2. LAMICTAL [Suspect]
     Indication: AFFECTIVE DISORDER
     Dosage: 25MG PER DAY
     Route: 048
     Dates: start: 20120302
  3. LEXAPRO [Concomitant]
  4. KLONOPIN [Concomitant]
  5. VESICARE [Concomitant]

REACTIONS (4)
  - MUSCULAR WEAKNESS [None]
  - RASH [None]
  - DIZZINESS [None]
  - FALL [None]
